FAERS Safety Report 20938722 (Version 1)
Quarter: 2022Q2

REPORT INFORMATION
  Report Type: Spontaneous
  Country: US (occurrence: None)
  Receive Date: 20220608
  Receipt Date: 20220608
  Transmission Date: 20220720
  Serious: No
  Sender: FDA-Public Use
  Company Number: None

PATIENT
  Age: 41 Year
  Sex: Female
  Weight: 72 kg

DRUGS (1)
  1. DEXTROAMPHET SACCHARAT, AMPHET ASPARTATE, DEXTROAMPHET SULFATE AND AMP [Suspect]
     Active Substance: AMPHETAMINE ASPARTATE\AMPHETAMINE SULFATE\DEXTROAMPHETAMINE SACCHARATE\DEXTROAMPHETAMINE SULFATE
     Indication: Attention deficit hyperactivity disorder
     Dosage: FREQUENCY : 3 TIMES A DAY;?
     Route: 048
     Dates: start: 20220607, end: 20220608

REACTIONS (10)
  - Migraine [None]
  - Nausea [None]
  - Fatigue [None]
  - Disturbance in attention [None]
  - Asthenia [None]
  - Stress [None]
  - Product substitution issue [None]
  - Impaired work ability [None]
  - General physical health deterioration [None]
  - Headache [None]

NARRATIVE: CASE EVENT DATE: 20220607
